FAERS Safety Report 5572176-4 (Version None)
Quarter: 2007Q4

REPORT INFORMATION
  Report Type: 
  Country: None (occurrence: None)
  Receive Date: 20071221
  Receipt Date: 20071220
  Transmission Date: 20080405
  Serious: Yes (Hospitalization)
  Sender: FDA-Public Use
  Company Number: FR-MERCK-0712FRA00079

PATIENT
  Age: 56 Year
  Sex: Male

DRUGS (3)
  1. PRIMAXIN [Suspect]
     Indication: URINARY TRACT INFECTION
     Route: 042
     Dates: start: 20070404, end: 20070427
  2. VANCOMYCIN [Suspect]
     Indication: STAPHYLOCOCCAL INFECTION
     Route: 042
     Dates: start: 20070404, end: 20070427
  3. VANCOMYCIN [Suspect]
     Route: 042
     Dates: start: 20070309, end: 20070316

REACTIONS (2)
  - THROMBOPHLEBITIS [None]
  - THROMBOSIS [None]
